FAERS Safety Report 25389751 (Version 1)
Quarter: 2025Q2

REPORT INFORMATION
  Report Type: Spontaneous
  Country: US (occurrence: None)
  Receive Date: 20250602
  Receipt Date: 20250602
  Transmission Date: 20250716
  Serious: Yes (Life-Threatening, Hospitalization, Disabling)
  Sender: FDA-CTU
  Company Number: None

PATIENT
  Age: 68 Year
  Sex: Female
  Weight: 81 kg

DRUGS (3)
  1. ATIVAN [Suspect]
     Active Substance: LORAZEPAM
     Indication: Insomnia
     Dosage: OTHER QUANTITY : 4 TABLET(S);?FREQUENCY : AT BEDTIME;?
     Route: 048
  2. ZOLOFT 100 [Concomitant]
  3. KLONOPIN [Concomitant]
     Active Substance: CLONAZEPAM

REACTIONS (6)
  - Withdrawal syndrome [None]
  - Insomnia [None]
  - Anxiety [None]
  - Palpitations [None]
  - Fear [None]
  - Loss of personal independence in daily activities [None]

NARRATIVE: CASE EVENT DATE: 20200101
